FAERS Safety Report 20205130 (Version 1)
Quarter: 2021Q4

REPORT INFORMATION
  Report Type: Spontaneous
  Country: US (occurrence: None)
  Receive Date: 20211220
  Receipt Date: 20211220
  Transmission Date: 20220303
  Serious: No
  Sender: FDA-Public Use
  Company Number: US-MDD US Operations-2020SUP00736

PATIENT
  Age: 60 Year
  Sex: Male

DRUGS (4)
  1. OXTELLAR XR [Suspect]
     Active Substance: OXCARBAZEPINE
     Dosage: UNK DOSE INCREASE
  2. OXTELLAR XR [Suspect]
     Active Substance: OXCARBAZEPINE
  3. OXTELLAR XR [Suspect]
     Active Substance: OXCARBAZEPINE
     Dosage: UNK DOSE INCREASE
  4. OXTELLAR XR [Suspect]
     Active Substance: OXCARBAZEPINE

REACTIONS (1)
  - Drug ineffective [Unknown]
